FAERS Safety Report 4489152-5 (Version None)
Quarter: 2004Q4

REPORT INFORMATION
  Report Type: 
  Country: None (occurrence: None)
  Receive Date: 20041029
  Receipt Date: 20041022
  Transmission Date: 20050328
  Serious: Yes (Life-Threatening, Hospitalization)
  Sender: FDA-Public Use
  Company Number: US-MERCK-0410USA03606

PATIENT
  Age: 46 Year
  Sex: Male

DRUGS (2)
  1. VIOXX [Suspect]
     Route: 048
  2. HYDROCORTISONE [Concomitant]
     Route: 065

REACTIONS (4)
  - ABDOMINAL PAIN UPPER [None]
  - CHEST PAIN [None]
  - HYPERTENSION [None]
  - MOOD SWINGS [None]
